FAERS Safety Report 9243068 (Version 2)
Quarter: 2013Q2

REPORT INFORMATION
  Report Type: Spontaneous
  Country: US (occurrence: US)
  Receive Date: 20130419
  Receipt Date: 20130517
  Transmission Date: 20140414
  Serious: No
  Sender: FDA-Public Use
  Company Number: US-009507513-1304USA008510

PATIENT
  Sex: Female
  Weight: 64.85 kg

DRUGS (4)
  1. PEGINTRON [Suspect]
     Indication: ANTIVIRAL TREATMENT
     Dosage: 80 MICROGRAM PER 0.5 ML, QW
     Route: 058
     Dates: start: 20121207
  2. PEGINTRON [Suspect]
     Indication: CHRONIC HEPATITIS C
  3. REBETOL [Suspect]
     Dosage: 4 DF, QD
     Route: 048
  4. VICTRELIS [Suspect]
     Dosage: 4 DF, QID
     Route: 048

REACTIONS (3)
  - Product quality issue [Unknown]
  - Inappropriate schedule of drug administration [Unknown]
  - No adverse event [Unknown]
